FAERS Safety Report 10169045 (Version 1)
Quarter: 2014Q2

REPORT INFORMATION
  Report Type: Spontaneous
  Country: US (occurrence: US)
  Receive Date: 20140513
  Receipt Date: 20140513
  Transmission Date: 20141212
  Serious: Yes (Other)
  Sender: FDA-Public Use
  Company Number: US-AMGEN-USASP2014033031

PATIENT
  Age: 59 Year
  Sex: Female

DRUGS (10)
  1. PROLIA [Suspect]
     Indication: OSTEOPOROSIS
     Route: 065
  2. CALCIUM [Concomitant]
  3. VITAMIN D                          /00107901/ [Concomitant]
     Dosage: 2000 IU, UNK
  4. AMITRIPTYLINE [Concomitant]
     Dosage: 10 MG, QHS
  5. CRESTOR [Concomitant]
     Dosage: 5 MG, QD
  6. MOBIC [Concomitant]
     Dosage: 15 MG, QHS
  7. CRANBERRY                          /01512301/ [Concomitant]
     Dosage: 500 MG, QD
  8. EMYCIN                             /00020901/ [Concomitant]
     Dosage: 2 %, UNK
     Route: 061
  9. METROGEL [Concomitant]
     Dosage: 1 %, UNK
  10. SKELAXIN                           /00611501/ [Concomitant]

REACTIONS (3)
  - Tooth abscess [Unknown]
  - Hypersensitivity [Unknown]
  - Impaired healing [Not Recovered/Not Resolved]
